FAERS Safety Report 12272759 (Version 3)
Quarter: 2016Q2

REPORT INFORMATION
  Report Type: Spontaneous
  Country: US (occurrence: US)
  Receive Date: 20160415
  Receipt Date: 20160523
  Transmission Date: 20160815
  Serious: No
  Sender: FDA-Public Use
  Company Number: US-PFIZER INC-2016167103

PATIENT
  Sex: Female

DRUGS (1)
  1. EMBEDA [Suspect]
     Active Substance: MORPHINE SULFATE\NALTREXONE HYDROCHLORIDE
     Indication: ABDOMINAL PAIN
     Dosage: [MORPHINE SULFATE 100MG]/[NALTREXONE HYDROCHLORIDE 4MG]/1-2 TIMES A DAY/Q12HRS
     Dates: start: 20160310

REACTIONS (4)
  - Muscle spasms [Unknown]
  - Pain [Unknown]
  - Product physical issue [Unknown]
  - Poor quality drug administered [Unknown]
